FAERS Safety Report 14318661 (Version 2)
Quarter: 2018Q1

REPORT INFORMATION
  Report Type: Spontaneous
  Country: RU (occurrence: RU)
  Receive Date: 20171222
  Receipt Date: 20180115
  Transmission Date: 20180509
  Serious: Yes (Death)
  Sender: FDA-Public Use
  Company Number: RU-SA-2017SA260418

PATIENT
  Age: 18 Month
  Sex: Female
  Weight: 7.5 kg

DRUGS (1)
  1. MYOZYME [Suspect]
     Active Substance: ALGLUCOSIDASE ALFA
     Indication: GLYCOGEN STORAGE DISEASE TYPE II
     Route: 041
     Dates: start: 20160909, end: 20171215

REACTIONS (1)
  - Death [Fatal]

NARRATIVE: CASE EVENT DATE: 20171218
